FAERS Safety Report 19856065 (Version 1)
Quarter: 2021Q3

REPORT INFORMATION
  Report Type: Spontaneous
  Country: US (occurrence: US)
  Receive Date: 20210920
  Receipt Date: 20210920
  Transmission Date: 20211014
  Serious: Yes (Hospitalization)
  Sender: FDA-Public Use
  Company Number: None

PATIENT
  Age: 12 Year
  Sex: Male
  Weight: 116 kg

DRUGS (12)
  1. DOCUSATE [Concomitant]
     Active Substance: DOCUSATE
  2. FAMOTIDINE. [Concomitant]
     Active Substance: FAMOTIDINE
  3. ROCURONIUM [Concomitant]
     Active Substance: ROCURONIUM BROMIDE
  4. PANTOPRAZOLE [Concomitant]
     Active Substance: PANTOPRAZOLE
  5. DEXMEDETOMIDINE. [Concomitant]
     Active Substance: DEXMEDETOMIDINE
  6. MIDAZOLAM. [Concomitant]
     Active Substance: MIDAZOLAM
  7. BARICITINIB. [Suspect]
     Active Substance: BARICITINIB
     Indication: COVID-19
     Route: 048
     Dates: start: 20210906, end: 20210915
  8. ENOXAPARIN [Concomitant]
     Active Substance: ENOXAPARIN
  9. IBUPROFEN. [Concomitant]
     Active Substance: IBUPROFEN
  10. FENTANYL. [Concomitant]
     Active Substance: FENTANYL
  11. DEXAMETHASONE. [Concomitant]
     Active Substance: DEXAMETHASONE
  12. FUROSEMIDE. [Concomitant]
     Active Substance: FUROSEMIDE

REACTIONS (3)
  - Transaminases increased [None]
  - Alanine aminotransferase increased [None]
  - Aspartate aminotransferase increased [None]

NARRATIVE: CASE EVENT DATE: 20210915
